FAERS Safety Report 17699328 (Version 2)
Quarter: 2020Q3

REPORT INFORMATION
  Report Type: Report from Study
  Country: CA (occurrence: CA)
  Receive Date: 20200423
  Receipt Date: 20200817
  Transmission Date: 20201102
  Serious: Yes (Hospitalization)
  Sender: FDA-Public Use
  Company Number: CA-ASTELLAS-2019US015919

PATIENT
  Age: 82 Year
  Sex: Female

DRUGS (2)
  1. ASG?22CE [Suspect]
     Active Substance: ENFORTUMAB VEDOTIN
     Indication: BLADDER CANCER
     Dosage: 98 MG, OTHER (3 CONSECUTIVE WEEKS THEN 1 WEEK OFF)
     Route: 042
  2. ASG?22CE [Suspect]
     Active Substance: ENFORTUMAB VEDOTIN
     Indication: TRANSITIONAL CELL CARCINOMA
     Route: 042
     Dates: start: 20190305, end: 20190313

REACTIONS (3)
  - Urinary tract infection bacterial [Recovered/Resolved]
  - Oesophagitis [Recovered/Resolved]
  - Urinary tract infection [Recovering/Resolving]

NARRATIVE: CASE EVENT DATE: 20190323
